FAERS Safety Report 4593359-6 (Version None)
Quarter: 2005Q1

REPORT INFORMATION
  Report Type: 
  Country: None (occurrence: None)
  Receive Date: 20050224
  Receipt Date: 20040505
  Transmission Date: 20050727
  Serious: No
  Sender: FDA-Public Use
  Company Number: US-BRISTOL-MYERS SQUIBB COMPANY-12581567

PATIENT
  Age: 23 Year
  Sex: Female

DRUGS (2)
  1. EXCEDRIN (MIGRAINE) [Suspect]
     Indication: MIGRAINE
     Dosage: TOOK 2 CAPLETS AT 6 PM
     Route: 048
     Dates: start: 20040504, end: 20040504
  2. INDERAL [Concomitant]
     Indication: BLOOD PRESSURE

REACTIONS (1)
  - BLOOD PRESSURE INCREASED [None]
